FAERS Safety Report 12655090 (Version 2)
Quarter: 2016Q3

REPORT INFORMATION
  Report Type: Spontaneous
  Country: FR (occurrence: FR)
  Receive Date: 20160816
  Receipt Date: 20160817
  Transmission Date: 20161109
  Serious: Yes (Hospitalization)
  Sender: FDA-Public Use
  Company Number: FR-ASTRAZENECA-2016SE86959

PATIENT
  Age: 5615 Day
  Sex: Female

DRUGS (2)
  1. XEROQUEL [Suspect]
     Active Substance: QUETIAPINE FUMARATE
     Indication: DELIRIUM
     Route: 048
     Dates: start: 20160413, end: 20160419
  2. NOZINAN [Suspect]
     Active Substance: LEVOMEPROMAZINE
     Indication: DELIRIUM
     Route: 048
     Dates: start: 20160413, end: 20160419

REACTIONS (5)
  - Gamma-glutamyltransferase increased [Recovered/Resolved]
  - Hepatocellular injury [Recovered/Resolved]
  - Blood alkaline phosphatase increased [Recovered/Resolved]
  - Off label use [Unknown]
  - Drug administered to patient of inappropriate age [Unknown]

NARRATIVE: CASE EVENT DATE: 20160419
